FAERS Safety Report 5133109-8 (Version None)
Quarter: 2006Q4

REPORT INFORMATION
  Report Type: 
  Country: None (occurrence: None)
  Receive Date: 20061017
  Receipt Date: 20061011
  Transmission Date: 20070319
  Serious: No
  Sender: FDA-Public Use
  Company Number: 06H-087-0310291-00

PATIENT
  Age: 63 Year
  Sex: Female

DRUGS (6)
  1. DEXMEDETOMIDINE INJECTION (DEXMEDETOMIDINE HYDROCHLORIDE INJECTION) (D [Suspect]
     Indication: SEDATIVE THERAPY
     Dosage: INTRAVENOUS
     Route: 042
     Dates: start: 20060125, end: 20060125
  2. DEXMEDETOMIDINE INJECTION (DEXMEDETOMIDINE HYDROCHLORIDE INJECTION) (D [Suspect]
     Indication: SEDATIVE THERAPY
     Dosage: INTRAVENOUS
     Route: 042
     Dates: start: 20060125, end: 20060125
  3. PROPOFOL [Concomitant]
  4. DOPAMINE HCL [Concomitant]
  5. MILLISROL (GLYCERYL TRINITRATE) [Concomitant]
  6. NICARDIPINE HYDROCHLORIDE [Concomitant]

REACTIONS (6)
  - BLOOD PRESSURE DECREASED [None]
  - CARDIAC INDEX DECREASED [None]
  - CARDIOVASCULAR INSUFFICIENCY [None]
  - DEPRESSED LEVEL OF CONSCIOUSNESS [None]
  - POST PROCEDURAL COMPLICATION [None]
  - RESTLESSNESS [None]
